FAERS Safety Report 6150319-1 (Version None)
Quarter: 2009Q2

REPORT INFORMATION
  Report Type: 
  Country: None (occurrence: None)
  Receive Date: 20090409
  Receipt Date: 20090330
  Transmission Date: 20091009
  Serious: Yes (Other)
  Sender: FDA-Public Use
  Company Number: US-ROCHE-624723

PATIENT
  Sex: Female

DRUGS (4)
  1. PEG-INTERFERON A-2A (RO 25-8310) [Suspect]
     Indication: HEPATITIS C
     Dosage: FORM: PREFILLED SYRINGES
     Route: 065
     Dates: start: 20081221, end: 20090316
  2. RIBAPAK [Suspect]
     Indication: HEPATITIS C
     Dosage: DAILY DOSES
     Route: 065
     Dates: start: 20081221, end: 20090316
  3. SYNTHROID [Concomitant]
     Route: 048
  4. DILANTIN [Concomitant]
     Dosage: AT NIGHT
     Route: 048

REACTIONS (3)
  - ABDOMINAL DISTENSION [None]
  - AMMONIA INCREASED [None]
  - CONVULSION [None]
